FAERS Safety Report 24849928 (Version 2)
Quarter: 2025Q1

REPORT INFORMATION
  Report Type: Spontaneous
  Country: US (occurrence: US)
  Receive Date: 20250116
  Receipt Date: 20250120
  Transmission Date: 20250408
  Serious: Yes (Other)
  Sender: PFIZER
  Company Number: US-PFIZER INC-202500009023

PATIENT
  Age: 65 Year
  Sex: Female

DRUGS (1)
  1. XELJANZ XR [Suspect]
     Active Substance: TOFACITINIB CITRATE
     Indication: Rheumatoid arthritis
     Dosage: 11 MG, 1X/DAY (IN THE MORNING)
     Route: 048

REACTIONS (7)
  - Road traffic accident [Unknown]
  - Ulna fracture [Not Recovered/Not Resolved]
  - Fall [Unknown]
  - Clavicle fracture [Unknown]
  - Dizziness [Not Recovered/Not Resolved]
  - Arthralgia [Recovering/Resolving]
  - Musculoskeletal stiffness [Not Recovered/Not Resolved]

NARRATIVE: CASE EVENT DATE: 20240801
